FAERS Safety Report 8775553 (Version 2)
Quarter: 2012Q4

REPORT INFORMATION
  Report Type: Report from Study
  Country: CA (occurrence: CA)
  Receive Date: 20120909
  Receipt Date: 20120923
  Transmission Date: 20130627
  Serious: Yes (Life-Threatening, Hospitalization)
  Sender: FDA-Public Use
  Company Number: CA-ABBOTT-12P-028-0977565-00

PATIENT
  Sex: Male
  Weight: 75.36 kg

DRUGS (1)
  1. LUPRON DEPOT [Suspect]
     Indication: PROSTATE CANCER
     Dosage: Latest dose 20-Jun-2012
     Dates: start: 20111223

REACTIONS (3)
  - Mental impairment [Unknown]
  - Psychotic disorder [Unknown]
  - Suicidal behaviour [Unknown]
